FAERS Safety Report 18002200 (Version 1)
Quarter: 2020Q3

REPORT INFORMATION
  Report Type: Spontaneous
  Country: US (occurrence: US)
  Receive Date: 20200709
  Receipt Date: 20200709
  Transmission Date: 20201103
  Serious: No
  Sender: FDA-Public Use
  Company Number: US-JNJFOC-20200708522

PATIENT
  Sex: Female
  Weight: 62.65 kg

DRUGS (1)
  1. LEVAQUIN [Suspect]
     Active Substance: LEVOFLOXACIN
     Indication: SINUSITIS
     Route: 065

REACTIONS (5)
  - Myalgia [Unknown]
  - Drug intolerance [Unknown]
  - Headache [Unknown]
  - Heart rate increased [Unknown]
  - Gastrooesophageal reflux disease [Unknown]
